FAERS Safety Report 10214242 (Version 1)
Quarter: 2014Q2

REPORT INFORMATION
  Report Type: Spontaneous
  Country: US (occurrence: US)
  Receive Date: 20140603
  Receipt Date: 20140603
  Transmission Date: 20141212
  Serious: No
  Sender: FDA-Public Use
  Company Number: US-PFIZER INC-2014149401

PATIENT
  Age: 41 Year
  Sex: Male

DRUGS (2)
  1. CHANTIX [Suspect]
     Indication: SMOKING CESSATION THERAPY
     Dosage: 0.5 MG, UNK
     Dates: start: 201403, end: 201403
  2. CHANTIX [Suspect]
     Dosage: 1 MG, UNK
     Dates: start: 201403, end: 201403

REACTIONS (2)
  - Nausea [Unknown]
  - Malaise [Unknown]
